FAERS Safety Report 6720415-6 (Version None)
Quarter: 2010Q2

REPORT INFORMATION
  Report Type: 
  Country: None (occurrence: None)
  Receive Date: 20100506
  Receipt Date: 20100422
  Transmission Date: 20101027
  Serious: Yes (Hospitalization, Other)
  Sender: FDA-Public Use
  Company Number: THQ2010A00988

PATIENT
  Age: 46 Year
  Sex: Male

DRUGS (10)
  1. LANSOPRAZOLE [Suspect]
     Indication: GASTROOESOPHAGEAL REFLUX DISEASE
     Dosage: 60 MG (30 MG, 2 IN 1 D)
     Dates: start: 20040811, end: 20100317
  2. CARBOCISTEINE [Concomitant]
  3. DOMPERIDONE [Concomitant]
  4. DOTHIEPIN HYDROCHLORIDE [Concomitant]
  5. HALOPERIDOL [Concomitant]
  6. LACTULOSE [Concomitant]
  7. OMEPRAZOLE [Concomitant]
  8. PROCYCLIDINE HYDROCHLORIDE [Concomitant]
  9. SENOKOT (SENNA ALEXANDRINA FRUIT) [Concomitant]
  10. SODIUM CHLORIDE [Concomitant]

REACTIONS (1)
  - DEVICE OCCLUSION [None]
